FAERS Safety Report 7892769-9 (Version None)
Quarter: 2011Q4

REPORT INFORMATION
  Report Type: 
  Country: None (occurrence: None)
  Receive Date: 20111104
  Receipt Date: 20111021
  Transmission Date: 20120403
  Serious: Yes (Hospitalization)
  Sender: FDA-Public Use
  Company Number: US-ELI_LILLY_AND_COMPANY-US201110003114

PATIENT
  Age: 62 Year
  Sex: Female

DRUGS (4)
  1. CYMBALTA [Suspect]
     Indication: PAIN
     Dosage: 30 MG, QD
  2. CYMBALTA [Suspect]
     Dosage: 30 MG, BID
  3. OXYCODONE HCL [Concomitant]
  4. LEXAPRO [Concomitant]

REACTIONS (9)
  - DRUG INEFFECTIVE [None]
  - HYPERSENSITIVITY [None]
  - LARYNGITIS [None]
  - COUGH [None]
  - AGITATION [None]
  - MEMORY IMPAIRMENT [None]
  - NAUSEA [None]
  - DISCOMFORT [None]
  - CONFUSIONAL STATE [None]
